FAERS Safety Report 9791442 (Version 1)
Quarter: 2014Q1

REPORT INFORMATION
  Report Type: Report from Study
  Country: US (occurrence: US)
  Receive Date: 20140101
  Receipt Date: 20140101
  Transmission Date: 20141002
  Serious: Yes (Death)
  Sender: FDA-Public Use
  Company Number: PHEH2013US026545

PATIENT
  Age: 80 Year
  Sex: Male

DRUGS (9)
  1. GLEEVEC [Suspect]
     Indication: CHRONIC MYELOID LEUKAEMIA
     Dosage: 200 MG, DAILY
     Route: 048
     Dates: start: 20130610
  2. FLOMAX//MORNIFLUMATE [Concomitant]
     Dosage: UNK UKN, UNK
  3. LOTREL [Concomitant]
     Dosage: UNK UKN, UNK
  4. GLIPIZIDE [Concomitant]
     Dosage: UNK UKN, UNK
  5. PLAVIX [Concomitant]
     Dosage: UNK UKN, UNK
  6. METOPROLOL [Concomitant]
     Dosage: UNK UKN, UNK
  7. SIMVASTATIN [Concomitant]
     Dosage: UNK UKN, UNK
  8. METFORMINE [Concomitant]
     Dosage: UNK UKN, UNK
  9. GLIBENCLAMID [Concomitant]
     Dosage: UNK UKN, UNK

REACTIONS (1)
  - Death [Fatal]
